FAERS Safety Report 5884390-9 (Version None)
Quarter: 2008Q3

REPORT INFORMATION
  Report Type: 
  Country: None (occurrence: None)
  Receive Date: 20080915
  Receipt Date: 20080903
  Transmission Date: 20090109
  Serious: Yes (Other)
  Sender: FDA-Public Use
  Company Number: FR-PFIZER INC-2008073948

PATIENT
  Sex: Female

DRUGS (2)
  1. TRIFLUCAN [Suspect]
     Indication: FUNGAL INFECTION
     Route: 048
     Dates: start: 20080804, end: 20080813
  2. BACTRIM DS [Suspect]
     Indication: URINARY TRACT INFECTION
     Dosage: TEXT:2 DF-FREQ:DAILY
     Route: 048
     Dates: start: 20080807, end: 20080811

REACTIONS (2)
  - AGRANULOCYTOSIS [None]
  - PYREXIA [None]
